FAERS Safety Report 11473973 (Version 3)
Quarter: 2021Q1

REPORT INFORMATION
  Report Type: Spontaneous
  Country: US (occurrence: US)
  Receive Date: 20150908
  Receipt Date: 20210104
  Transmission Date: 20210419
  Serious: No
  Sender: FDA-Public Use
  Company Number: US-JAZZ-2013-US-003856

PATIENT
  Sex: Female
  Weight: 68.03 kg

DRUGS (10)
  1. XYREM [Suspect]
     Active Substance: SODIUM OXYBATE
     Indication: NARCOLEPSY
     Dosage: 4.5 G, BID
     Route: 048
     Dates: start: 201303, end: 2013
  2. DHEA [Concomitant]
     Active Substance: PRASTERONE
     Indication: HORMONE THERAPY
     Dosage: 10 MG, QD
  3. XYREM [Suspect]
     Active Substance: SODIUM OXYBATE
     Dosage: 4 G, SECOND DOSE
     Route: 048
     Dates: start: 201308, end: 2013
  4. XYREM [Suspect]
     Active Substance: SODIUM OXYBATE
     Dosage: 4.5 G, BID
     Route: 048
     Dates: start: 2013
  5. CELEXA [Concomitant]
     Active Substance: CITALOPRAM HYDROBROMIDE
     Indication: DEPRESSION
     Dosage: 10 MG, QD
  6. PROGESTERONE. [Concomitant]
     Active Substance: PROGESTERONE
     Indication: HORMONE THERAPY
     Dosage: 200 MG, QD
  7. XYREM [Suspect]
     Active Substance: SODIUM OXYBATE
     Dosage: DOSE ADJUSTMENT
     Route: 048
  8. VIVELLE?DOT [Concomitant]
     Active Substance: ESTRADIOL
     Indication: HORMONE THERAPY
  9. XYREM [Suspect]
     Active Substance: SODIUM OXYBATE
     Dosage: 5 G, FIRST DOSE
     Route: 048
     Dates: start: 201308, end: 2013
  10. CARBATROL [Concomitant]
     Active Substance: CARBAMAZEPINE
     Indication: SEIZURE
     Dosage: 100 MG, QID

REACTIONS (2)
  - Product administration error [Unknown]
  - Hypothyroidism [Unknown]

NARRATIVE: CASE EVENT DATE: 2013
